FAERS Safety Report 10614581 (Version 1)
Quarter: 2014Q4

REPORT INFORMATION
  Report Type: Spontaneous
  Country: US (occurrence: US)
  Receive Date: 20141130
  Receipt Date: 20141130
  Transmission Date: 20150529
  Serious: Yes (Hospitalization)
  Sender: FDA-Public Use
  Company Number: US-AMGEN-USASP2014092433

PATIENT
  Age: 70 Year
  Sex: Female

DRUGS (7)
  1. PACLITAXEL. [Suspect]
     Active Substance: PACLITAXEL
     Indication: BREAST CANCER
     Dosage: OVER 1 HR ON DAYS 1, 8 AND 15, CYCLE 14 DAYS (CYCLES 1-4) (80 MG/M2)
     Route: 042
     Dates: start: 20090506, end: 20090820
  2. FILGRASTIM [Suspect]
     Active Substance: FILGRASTIM
     Indication: BREAST CANCER
     Dosage: ON DAYS 2-11, CYCLE = 14 DAYS (CYCLES 1-4) (5 MUG/KG)
     Route: 058
     Dates: start: 20090506
  3. PEGFILGRASTIM [Suspect]
     Active Substance: PEGFILGRASTIM
     Indication: BREAST CANCER
     Dosage: ON DAY 2, CYCLE - 14 DAYS (CYCLES 1-4) (6 MG)
     Route: 058
     Dates: start: 20090506, end: 20090820
  4. SYNTHROID [Concomitant]
     Active Substance: LEVOTHYROXINE SODIUM
     Indication: BREAST CANCER
     Dosage: UNK
     Route: 065
  5. BEVACIZUMAB [Suspect]
     Active Substance: BEVACIZUMAB
     Indication: BREAST CANCER
     Dosage: 30-90 MIN ON DAY 1
     Route: 042
     Dates: start: 20090506, end: 20090723
  6. DOXORUBICIN [Concomitant]
     Active Substance: DOXORUBICIN
     Indication: BREAST CANCER
     Dosage: IVP ON DAY 1. CYCLE = 14 DAYS (CYCLES 1-4) (60 MG/M2)
     Route: 042
     Dates: start: 20090506, end: 20090617
  7. CYCLOPHOSPHAMIDE. [Concomitant]
     Active Substance: CYCLOPHOSPHAMIDE
     Indication: BREAST CANCER
     Dosage: OVER 20-30 MIN ON DAY 1 CYCLE = 14 DAYS (CYCLES 1-4) (600 MG/M2)
     Route: 042
     Dates: start: 20090506, end: 20090617

REACTIONS (2)
  - Febrile neutropenia [Recovering/Resolving]
  - Cystitis [Recovered/Resolved]

NARRATIVE: CASE EVENT DATE: 20090824
